FAERS Safety Report 7224267-X (Version None)
Quarter: 2011Q1

REPORT INFORMATION
  Report Type: 
  Country: None (occurrence: None)
  Receive Date: 20110113
  Receipt Date: 20110110
  Transmission Date: 20110831
  Serious: Yes (Disabling, Other)
  Sender: FDA-Public Use
  Company Number: GB-ELI_LILLY_AND_COMPANY-GB201101001949

PATIENT
  Age: 80 Year
  Sex: Female

DRUGS (2)
  1. HUMALOG MIX 75/25 [Suspect]
     Indication: DIABETES MELLITUS
     Dosage: 10 D/F, 2/D
     Route: 058
     Dates: start: 20101209, end: 20101214
  2. ROSIGLITAZONE [Concomitant]
     Indication: COGNITIVE DISORDER

REACTIONS (1)
  - OEDEMA PERIPHERAL [None]
